FAERS Safety Report 7214216-2 (Version None)
Quarter: 2010Q4

REPORT INFORMATION
  Report Type: 
  Country: None (occurrence: None)
  Receive Date: 20101126
  Receipt Date: 20091013
  Transmission Date: 20110411
  Serious: Yes (Other)
  Sender: FDA-Public Use
  Company Number: WAES 0809USA04316

PATIENT
  Age: 70 Year
  Sex: Female
  Weight: 78.4723 kg

DRUGS (3)
  1. FOSAMAX [Suspect]
     Indication: OSTEOPOROSIS PROPHYLAXIS
     Dosage: 70 MG/WKY/PO
     Route: 048
     Dates: start: 20010101, end: 20070501
  2. ZOMETA [Suspect]
     Dosage: 4 MG/MTH/IV
     Route: 042
     Dates: start: 20050412, end: 20070901
  3. ZOLOFT [Concomitant]

REACTIONS (30)
  - ABDOMINAL ADHESIONS [None]
  - ACTINOMYCOSIS [None]
  - BACK PAIN [None]
  - BONE DISORDER [None]
  - BREAST PAIN [None]
  - COLITIS [None]
  - CONSTIPATION [None]
  - DECREASED APPETITE [None]
  - DIVERTICULUM [None]
  - FALL [None]
  - GINGIVAL BLEEDING [None]
  - HAEMORRHOIDS [None]
  - IMPAIRED HEALING [None]
  - INFECTION [None]
  - INSOMNIA [None]
  - MUCOSAL INFLAMMATION [None]
  - MULTIPLE MYELOMA [None]
  - MUSCULOSKELETAL PAIN [None]
  - ORAL DISORDER [None]
  - OSTEOMYELITIS [None]
  - OSTEONECROSIS [None]
  - PELVIC FRACTURE [None]
  - PERIODONTITIS [None]
  - POLLAKIURIA [None]
  - RESORPTION BONE INCREASED [None]
  - SPINAL COMPRESSION FRACTURE [None]
  - STOMATITIS [None]
  - TOOTH LOSS [None]
  - TOOTHACHE [None]
  - URINARY TRACT INFECTION [None]
